FAERS Safety Report 9668368 (Version 1)
Quarter: 2013Q4

REPORT INFORMATION
  Report Type: Report from Study
  Country: EC (occurrence: EC)
  Receive Date: 20131104
  Receipt Date: 20131104
  Transmission Date: 20140711
  Serious: Yes (Other)
  Sender: FDA-Public Use
  Company Number: PHHY2013EC124381

PATIENT
  Age: 75 Year
  Sex: Male

DRUGS (6)
  1. DIOVAN [Suspect]
     Indication: HYPERTENSION
     Dosage: 1 DF (80MG), QD
     Route: 048
     Dates: start: 2003
  2. DIOVAN [Suspect]
     Dosage: 1 DF (320MG), QD
     Route: 048
     Dates: start: 2009
  3. TRENTAL [Concomitant]
     Indication: CARDIOVASCULAR DISORDER
     Dosage: UNK UKN, QD
     Dates: start: 2005
  4. OMEPRAZOLE [Concomitant]
     Indication: GASTRITIS
     Dosage: 1 DF, (40 MG) QD
     Dates: start: 2011
  5. ATEROMIXOL [Concomitant]
     Indication: BLOOD CHOLESTEROL ABNORMAL
     Dosage: UNK UKN, QD
     Route: 048
     Dates: start: 1992
  6. TAMSULON [Concomitant]
     Indication: PROSTATIC DISORDER
     Dosage: UNK UKN, QD
     Route: 048

REACTIONS (4)
  - Glaucoma [Not Recovered/Not Resolved]
  - Lip and/or oral cavity cancer [Recovering/Resolving]
  - Anger [Unknown]
  - Blood pressure increased [Unknown]
